FAERS Safety Report 7913705-2 (Version None)
Quarter: 2011Q4

REPORT INFORMATION
  Report Type: 
  Country: None (occurrence: None)
  Receive Date: 20111110
  Receipt Date: 20111102
  Transmission Date: 20120403
  Serious: Yes (Life-Threatening, Hospitalization)
  Sender: FDA-Public Use
  Company Number: AUR-APL-2011-05685

PATIENT
  Age: 75 Year
  Weight: 58 kg

DRUGS (3)
  1. METHYLTHIONINIUM CHLORIDE (METHYLTHIONINIUM CHLORIDE) [Suspect]
     Indication: PARATHYROIDECTOMY
     Dosage: (5 MG/KG, )
     Dates: start: 20110609, end: 20110609
  2. TRAMADOL HCL [Concomitant]
  3. CITALOPRAM HYDROBROMIDE [Suspect]
     Indication: PRODUCT USED FOR UNKNOWN INDICATION
     Dosage: (20 MG), ORAL
     Route: 048
     Dates: end: 20110610

REACTIONS (2)
  - SEROTONIN SYNDROME [None]
  - NEUROTOXICITY [None]
